FAERS Safety Report 8967416 (Version 1)
Quarter: 2012Q4

REPORT INFORMATION
  Report Type: 
  Country: US (occurrence: US)
  Receive Date: 20121214
  Receipt Date: 20121214
  Transmission Date: 20130627
  Serious: Yes (Hospitalization)
  Sender: FDA-Public Use
  Company Number: US-ACTELION-A-US2012-75834

PATIENT
  Age: 41 Year
  Sex: Male

DRUGS (1)
  1. VELETRI [Suspect]
     Indication: PULMONARY ARTERIAL HYPERTENSION
     Dosage: 43.3 ng/kg, per min
     Route: 042
     Dates: start: 20110328

REACTIONS (3)
  - Sepsis [Unknown]
  - Clostridium difficile infection [Unknown]
  - Device related infection [Unknown]
